FAERS Safety Report 8458508-8 (Version None)
Quarter: 2012Q2

REPORT INFORMATION
  Report Type: 
  Country: None (occurrence: None)
  Receive Date: 20120622
  Receipt Date: 20120611
  Transmission Date: 20120825
  Serious: Yes (Hospitalization, Other)
  Sender: FDA-Public Use
  Company Number: US-ELI_LILLY_AND_COMPANY-US201201000031

PATIENT
  Sex: Female

DRUGS (19)
  1. FORTEO [Suspect]
     Indication: OSTEOPOROSIS
     Dosage: 20 UG, QD
     Route: 065
  2. METHADONE HCL [Concomitant]
     Indication: PAIN
     Dosage: UNK, QID
     Route: 065
  3. FUROSEMIDE [Concomitant]
     Dosage: 40 MG, QD
     Route: 065
  4. ASPIRIN [Concomitant]
     Dosage: 81 MG, QD
     Route: 065
  5. HYDROCHLOROTHIAZIDE [Concomitant]
     Dosage: UNK, QD
     Route: 065
  6. CYCLOBENZAPRINE [Concomitant]
     Dosage: 5 MG, OTHER (TID PRN)
     Route: 065
  7. POTASSIUM ACETATE [Concomitant]
  8. VITAMIN D [Concomitant]
     Dosage: 50000 DF, MONTHLY (1/M)
     Route: 065
  9. VENTOLIN HFA [Concomitant]
     Dosage: UNK, UNKNOWN
     Route: 065
  10. SPIRIVA [Concomitant]
     Indication: LUNG DISORDER
     Dosage: 1 CAPSULE BID
     Route: 065
  11. ADVAIR DISKUS 100/50 [Concomitant]
     Dosage: 1 PUFF, QD
     Route: 055
  12. NEXIUM [Concomitant]
     Dosage: UNK, UNKNOWN
     Route: 065
  13. SIMVASTATIN [Concomitant]
     Dosage: 40 MG, QD
     Route: 065
  14. FLECTOR                            /00372302/ [Concomitant]
  15. FOLIC ACID [Concomitant]
     Dosage: 1 MG, UNKNOWN
     Route: 065
  16. MECLIZINE [Concomitant]
     Dosage: 25 MG, OTHER (QID PRN)
     Route: 065
  17. SYMBYAX [Concomitant]
     Dosage: UNK, QD
     Route: 065
  18. MELOXICAM [Concomitant]
     Dosage: 7.5 MG, QD
     Route: 065
  19. ALPRAZOLAM [Concomitant]
     Dosage: UNK, UNKNOWN (TID PRN)
     Route: 065

REACTIONS (10)
  - HIP ARTHROPLASTY [None]
  - INFLAMMATION OF WOUND [None]
  - PELVIC FRACTURE [None]
  - OEDEMA PERIPHERAL [None]
  - IMPAIRED HEALING [None]
  - FALL [None]
  - DECUBITUS ULCER [None]
  - HIP FRACTURE [None]
  - LACERATION [None]
  - MOBILITY DECREASED [None]
